FAERS Safety Report 25995053 (Version 1)
Quarter: 2025Q4

REPORT INFORMATION
  Report Type: Spontaneous
  Country: EU (occurrence: EU)
  Receive Date: 20251104
  Receipt Date: 20251104
  Transmission Date: 20260117
  Serious: Yes (Death, Other)
  Sender: AUROBINDO
  Company Number: EU-AFSSAPS-AVBX2025000741

PATIENT
  Age: 32 Year
  Sex: Male

DRUGS (4)
  1. DIAZEPAM [Suspect]
     Active Substance: DIAZEPAM
     Indication: Product used for unknown indication
     Dosage: UNK
     Route: 065
     Dates: start: 20250719
  2. SILDENAFIL [Suspect]
     Active Substance: SILDENAFIL
     Indication: Erectile dysfunction
     Dosage: UNK
     Route: 065
     Dates: start: 20250719
  3. KETAMINE [Suspect]
     Active Substance: KETAMINE
     Indication: Product used for unknown indication
     Dosage: UNK
     Route: 065
     Dates: start: 20250719
  4. CANNABIS SATIVA SUBSP. INDICA TOP [Suspect]
     Active Substance: CANNABIS SATIVA SUBSP. INDICA TOP
     Indication: Product used for unknown indication
     Dosage: UNK
     Route: 065
     Dates: start: 20250719

REACTIONS (2)
  - Drug abuse [Fatal]
  - High risk sexual behaviour [Fatal]

NARRATIVE: CASE EVENT DATE: 20250719
